FAERS Safety Report 5224896-9 (Version None)
Quarter: 2007Q1

REPORT INFORMATION
  Report Type: 
  Country: None (occurrence: None)
  Receive Date: 20070126
  Receipt Date: 20070124
  Transmission Date: 20070707
  Serious: Yes (Life-Threatening, Hospitalization)
  Sender: FDA-Public Use
  Company Number: 2007-00167

PATIENT
  Age: 62 Year
  Sex: Female
  Weight: 42 kg

DRUGS (2)
  1. VELCADE [Suspect]
     Indication: MULTIPLE SCLEROSIS
     Dosage: SEE IMAGE
     Route: 042
     Dates: start: 20061226, end: 20061229
  2. VELCADE [Suspect]
     Indication: MULTIPLE SCLEROSIS
     Dosage: SEE IMAGE
     Route: 042
     Dates: start: 20070105, end: 20070119

REACTIONS (1)
  - SEPTIC SHOCK [None]
